FAERS Safety Report 15430318 (Version 2)
Quarter: 2018Q4

REPORT INFORMATION
  Report Type: Report from Study
  Country: US (occurrence: US)
  Receive Date: 20180926
  Receipt Date: 20181006
  Transmission Date: 20190204
  Serious: Yes (Death, Life-Threatening, Other)
  Sender: FDA-Public Use
  Company Number: US-TEVA-2018-US-957603

PATIENT
  Age: 25 Year
  Sex: Male

DRUGS (1)
  1. ALPRAZOLAM. [Suspect]
     Active Substance: ALPRAZOLAM
     Route: 065

REACTIONS (12)
  - Acute kidney injury [Unknown]
  - Hepatotoxicity [Unknown]
  - Metabolic acidosis [Unknown]
  - Pancreatitis [Unknown]
  - Coma [Unknown]
  - Anion gap abnormal [Unknown]
  - Toxicity to various agents [Fatal]
  - Hypotension [Unknown]
  - Heart injury [Unknown]
  - Respiratory depression [Unknown]
  - Myocardial ischaemia [Unknown]
  - Depressed level of consciousness [Unknown]
